FAERS Safety Report 19692400 (Version 2)
Quarter: 2021Q3

REPORT INFORMATION
  Report Type: Spontaneous
  Country: FR (occurrence: FR)
  Receive Date: 20210812
  Receipt Date: 20210909
  Transmission Date: 20211014
  Serious: Yes (Hospitalization, Other)
  Sender: FDA-Public Use
  Company Number: FR-009507513-2108FRA001133

PATIENT
  Age: 51 Year
  Sex: Male

DRUGS (7)
  1. VIVAGLOBIN [Suspect]
     Active Substance: HUMAN IMMUNOGLOBULIN G
     Indication: CHRONIC LYMPHOCYTIC LEUKAEMIA
     Dosage: 160MG/ML EVERY 7 DAYS, 160 MG/ML, SOLUTION INJECTABLE SUBCUTANEOUSLY
     Route: 058
     Dates: start: 20111025, end: 20111215
  2. FOSCAVIR [Concomitant]
     Active Substance: FOSCARNET SODIUM
     Dosage: UNK
     Dates: start: 20111122, end: 20111221
  3. NOXAFIL [Suspect]
     Active Substance: POSACONAZOLE
     Dosage: 200MG
     Dates: start: 20110715, end: 20110926
  4. CYMEVAN [Concomitant]
     Active Substance: GANCICLOVIR
     Dosage: UNK
  5. CORTANCYL [Concomitant]
     Active Substance: PREDNISONE
     Dosage: 60 MILLIGRAM
     Dates: start: 20110715, end: 20110926
  6. ACTHIB [Suspect]
     Active Substance: HAEMOPHILUS B CONJUGATE VACCINE (TETANUS TOXOID CONJUGATE)\HAEMOPHILUS INFLUENZAE TYPE B STRAIN 1482 CAPSULAR POLYSACCHARIDE TETANUS TOXOID CONJUGATE ANTIGEN
     Indication: IMMUNISATION
     Dosage: UNK
     Dates: start: 20111108, end: 20111108
  7. ACTHIB [Suspect]
     Active Substance: HAEMOPHILUS B CONJUGATE VACCINE (TETANUS TOXOID CONJUGATE)\HAEMOPHILUS INFLUENZAE TYPE B STRAIN 1482 CAPSULAR POLYSACCHARIDE TETANUS TOXOID CONJUGATE ANTIGEN
     Dosage: UNK
     Dates: start: 20110926

REACTIONS (10)
  - Polydipsia [Unknown]
  - Bone marrow disorder [Unknown]
  - Thrombocytopenia [Recovered/Resolved]
  - Product use in unapproved indication [Unknown]
  - Cytomegalovirus test positive [Unknown]
  - White blood cell count increased [Unknown]
  - Haemoglobin decreased [Unknown]
  - Polyuria [Unknown]
  - Graft versus host disease [Unknown]
  - White blood cell count decreased [Unknown]

NARRATIVE: CASE EVENT DATE: 20111028
